FAERS Safety Report 6681552-8 (Version None)
Quarter: 2010Q2

REPORT INFORMATION
  Report Type: 
  Country: None (occurrence: None)
  Receive Date: 20100414
  Receipt Date: 20100409
  Transmission Date: 20101027
  Serious: Yes (Death, Hospitalization)
  Sender: FDA-Public Use
  Company Number: PHHY2010JP22707

PATIENT
  Sex: Male

DRUGS (5)
  1. DIOVAN [Suspect]
     Dosage: 80 MG, QD
     Route: 048
     Dates: start: 20070829, end: 20070902
  2. AMARYL [Concomitant]
     Dosage: 6 MG, UNK
     Route: 048
     Dates: start: 20030818, end: 20070902
  3. FRANDOL [Concomitant]
     Dosage: 40 MG, UNK
     Route: 048
     Dates: start: 20060627, end: 20070902
  4. BASEN [Concomitant]
     Dosage: 0.9 MG, UNK
     Route: 048
     Dates: start: 20030818, end: 20070902
  5. KINEDAK [Concomitant]
     Dosage: 150 MG, UNK
     Route: 048
     Dates: start: 20070303, end: 20070903

REACTIONS (2)
  - CEREBRAL INFARCTION [None]
  - CONDITION AGGRAVATED [None]
